FAERS Safety Report 16434399 (Version 2)
Quarter: 2019Q2

REPORT INFORMATION
  Report Type: Report from Study
  Country: US (occurrence: US)
  Receive Date: 20190614
  Receipt Date: 20190620
  Transmission Date: 20190711
  Serious: No
  Sender: FDA-Public Use
  Company Number: US-BRISTOL-MYERS SQUIBB COMPANY-BMS-2019-057203

PATIENT
  Age: 68 Year
  Sex: Male

DRUGS (22)
  1. VOLTAREN ACTI [Concomitant]
     Active Substance: DICLOFENAC POTASSIUM
     Indication: PAIN
     Dosage: UNK
     Route: 061
     Dates: start: 20190501
  2. NIVOLUMAB [Suspect]
     Active Substance: NIVOLUMAB
     Indication: NEOPLASM MALIGNANT
     Dosage: 3 MILLIGRAM/KILOGRAM, Q3WK
     Route: 042
     Dates: start: 20190523
  3. ZEBETA [Concomitant]
     Active Substance: BISOPROLOL FUMARATE
     Indication: PRODUCT USED FOR UNKNOWN INDICATION
     Dosage: 10 MILLIGRAM
     Route: 048
     Dates: start: 20190604
  4. BRIMONIDINE [Concomitant]
     Active Substance: BRIMONIDINE TARTRATE
     Indication: PRODUCT USED FOR UNKNOWN INDICATION
     Dosage: UNK
     Route: 061
  5. CYMBALTA [Concomitant]
     Active Substance: DULOXETINE HYDROCHLORIDE
     Indication: PRODUCT USED FOR UNKNOWN INDICATION
     Dosage: 20 MILLIGRAM, QD
     Route: 048
  6. EMLAP [Concomitant]
     Indication: PAIN
     Dosage: UNK
     Route: 061
     Dates: start: 20190130
  7. MAGNESIUM OXIDE. [Concomitant]
     Active Substance: MAGNESIUM OXIDE
     Indication: PRODUCT USED FOR UNKNOWN INDICATION
     Dosage: 400 MILLIGRAM
     Route: 048
     Dates: start: 20180703
  8. OXYMETAZOLINE [Concomitant]
     Active Substance: OXYMETAZOLINE
     Indication: PRODUCT USED FOR UNKNOWN INDICATION
     Route: 061
  9. LEVITRA [Concomitant]
     Active Substance: VARDENAFIL HYDROCHLORIDE TRIHYDRATE
     Indication: PRODUCT USED FOR UNKNOWN INDICATION
     Route: 048
  10. DEMADEX [TORASEMIDE] [Concomitant]
     Indication: PRODUCT USED FOR UNKNOWN INDICATION
     Dosage: 20 MILLIGRAM, QD
     Route: 048
  11. XARELTO [Concomitant]
     Active Substance: RIVAROXABAN
     Indication: PRODUCT USED FOR UNKNOWN INDICATION
     Dosage: UNK
     Route: 065
     Dates: start: 20181217
  12. ALBUTEROL HFA [Concomitant]
     Active Substance: ALBUTEROL SULFATE
     Indication: WHEEZING
     Dosage: 6.7 GRAM
     Dates: start: 20180321
  13. ADOXA CK [Concomitant]
     Indication: PRODUCT USED FOR UNKNOWN INDICATION
     Dosage: 100 MILLIGRAM
     Route: 048
     Dates: start: 20190324
  14. PROTONIX [OMEPRAZOLE] [Concomitant]
     Active Substance: OMEPRAZOLE
     Indication: PRODUCT USED FOR UNKNOWN INDICATION
     Dosage: 40 MILLIGRAM, QD
     Route: 048
  15. CABIRALIZUMAB [Suspect]
     Active Substance: CABIRALIZUMAB
     Indication: NEOPLASM MALIGNANT
     Dosage: 4 MILLIGRAM/KILOGRAM, Q2WK
     Route: 042
     Dates: start: 20190523
  16. ASCORBIC ACID. [Concomitant]
     Active Substance: ASCORBIC ACID
     Indication: PRODUCT USED FOR UNKNOWN INDICATION
     Dosage: 1 TAB, TID
     Route: 048
     Dates: start: 20190531
  17. LYRICA [Concomitant]
     Active Substance: PREGABALIN
     Indication: PRODUCT USED FOR UNKNOWN INDICATION
     Dosage: 150 MILLIGRAM
     Route: 048
  18. VITAMIN D3 [Concomitant]
     Active Substance: CHOLECALCIFEROL
     Indication: PRODUCT USED FOR UNKNOWN INDICATION
     Dosage: UNK
     Route: 048
     Dates: start: 20190208
  19. VICTOZA [Concomitant]
     Active Substance: LIRAGLUTIDE
     Indication: PRODUCT USED FOR UNKNOWN INDICATION
     Dosage: UNK
     Route: 058
     Dates: start: 20180716
  20. GLUCOPHAGE [Concomitant]
     Active Substance: METFORMIN HYDROCHLORIDE
     Indication: PRODUCT USED FOR UNKNOWN INDICATION
     Dosage: 1000 MILLIGRAM, QD
     Route: 048
  21. ENTRESTO [Concomitant]
     Active Substance: SACUBITRIL\VALSARTAN
     Indication: PRODUCT USED FOR UNKNOWN INDICATION
     Dosage: 0.5 TAB, BID
     Route: 048
  22. ALDACTONE CAMPUS [Concomitant]
     Indication: PRODUCT USED FOR UNKNOWN INDICATION
     Dosage: 12.5 MILLIGRAM, QD
     Route: 048
     Dates: start: 20190103

REACTIONS (1)
  - Epistaxis [Unknown]

NARRATIVE: CASE EVENT DATE: 20190606
